FAERS Safety Report 9820926 (Version 2)
Quarter: 2014Q1

REPORT INFORMATION
  Report Type: Spontaneous
  Country: US (occurrence: US)
  Receive Date: 20140116
  Receipt Date: 20140331
  Transmission Date: 20141002
  Serious: Yes (Hospitalization)
  Sender: FDA-Public Use
  Company Number: US-B.I. PHARMACEUTICALS,INC./RIDGEFIELD-2014-BI-01093BP

PATIENT
  Age: 86 Year
  Sex: Female
  Weight: 49.44 kg

DRUGS (7)
  1. PRADAXA [Suspect]
     Indication: ATRIAL FIBRILLATION
     Dosage: 300 MG
     Route: 048
     Dates: start: 20110228, end: 20110724
  2. ATENOLOL [Concomitant]
     Dosage: 50 MG
     Route: 048
     Dates: start: 2009, end: 2011
  3. FOSAMAX [Concomitant]
     Indication: OSTEOPOROSIS
     Route: 048
  4. SIMVASTATIN [Concomitant]
     Dosage: 80 MG
     Route: 048
     Dates: start: 2009, end: 2012
  5. LEVOTHYROXINE [Concomitant]
     Route: 065
     Dates: start: 201009, end: 201301
  6. ALLOPURINOL [Concomitant]
     Dosage: 100 MG
     Route: 048
     Dates: start: 201104, end: 201301
  7. LASIX [Concomitant]
     Dosage: 20 MG
     Route: 048
     Dates: start: 2009

REACTIONS (3)
  - Upper gastrointestinal haemorrhage [Recovered/Resolved]
  - Haemorrhagic anaemia [Recovered/Resolved]
  - Coagulopathy [Unknown]
